FAERS Safety Report 10747264 (Version 6)
Quarter: 2015Q2

REPORT INFORMATION
  Report Type: Report from Study
  Country: ES (occurrence: ES)
  Receive Date: 20150129
  Receipt Date: 20150410
  Transmission Date: 20150821
  Serious: Yes (Hospitalization)
  Sender: FDA-Public Use
  Company Number: ES-ROCHE-1527759

PATIENT
  Age: 63 Year
  Sex: Female

DRUGS (3)
  1. ERLOTINIB [Suspect]
     Active Substance: ERLOTINIB
     Indication: NON-SMALL CELL LUNG CANCER
     Dosage: LAST DOSE OF DRUG ADMINISTERED PRIOR TO SAE ON 23/JAN/2015
     Route: 048
     Dates: start: 20140603, end: 20150309
  2. ERLOTINIB [Suspect]
     Active Substance: ERLOTINIB
     Dosage: DATE OF LAST DOSE OF PRIOR TO SAE 09/MAR/205
     Route: 048
     Dates: start: 20150202
  3. BEVACIZUMAB [Suspect]
     Active Substance: BEVACIZUMAB
     Indication: NON-SMALL CELL LUNG CANCER
     Dosage: LAST DOSE OF DRUG ADMINISTERED PRIOR TO SAE ON 02/JAN/2015?ACTUAL DOSE: 660 MG
     Route: 042
     Dates: start: 20140603, end: 20150202

REACTIONS (2)
  - Disseminated intravascular coagulation [Recovered/Resolved]
  - Disseminated intravascular coagulation [Not Recovered/Not Resolved]

NARRATIVE: CASE EVENT DATE: 20150123
